FAERS Safety Report 19449894 (Version 1)
Quarter: 2021Q2

REPORT INFORMATION
  Report Type: Report from Study
  Country: IN (occurrence: IN)
  Receive Date: 20210622
  Receipt Date: 20210622
  Transmission Date: 20210717
  Serious: Yes (Death, Hospitalization)
  Sender: FDA-Public Use
  Company Number: PHHY2019IN189683

PATIENT
  Age: 50 Year
  Sex: Male

DRUGS (3)
  1. TASIGNA [Suspect]
     Active Substance: NILOTINIB
     Dosage: 600 MG, QD (400 MG IN THE MORNING AND 200 MG IN THE EVENING)
     Route: 048
     Dates: start: 20200118
  2. TASIGNA [Suspect]
     Active Substance: NILOTINIB
     Indication: CHRONIC MYELOID LEUKAEMIA
     Dosage: 400 MG, BID
     Route: 048
     Dates: start: 20190709, end: 201906
  3. TASIGNA [Suspect]
     Active Substance: NILOTINIB
     Dosage: 400 MG, BID
     Route: 048
     Dates: start: 20191007, end: 20200117

REACTIONS (9)
  - Malignant neoplasm progression [Fatal]
  - Rash [Unknown]
  - Red blood cell count decreased [Unknown]
  - Platelet count decreased [Unknown]
  - Full blood count abnormal [Not Recovered/Not Resolved]
  - Haematocrit decreased [Unknown]
  - Pyrexia [Not Recovered/Not Resolved]
  - Fungal infection [Unknown]
  - Chronic myeloid leukaemia [Fatal]

NARRATIVE: CASE EVENT DATE: 201907
